FAERS Safety Report 17031201 (Version 1)
Quarter: 2019Q4

REPORT INFORMATION
  Report Type: Spontaneous
  Country: US (occurrence: US)
  Receive Date: 20191114
  Receipt Date: 20191114
  Transmission Date: 20200122
  Serious: No
  Sender: FDA-Public Use
  Company Number: US-PFIZER INC-2019482725

PATIENT
  Age: 38 Year
  Sex: Female
  Weight: 113.4 kg

DRUGS (1)
  1. CHANTIX [Suspect]
     Active Substance: VARENICLINE TARTRATE
     Indication: SMOKING CESSATION THERAPY
     Dosage: 1 MG, 2X/DAY (1MG TABLET IN THE MORNING AND THE EVENING)
     Dates: end: 20191106

REACTIONS (4)
  - Pain [Unknown]
  - Maternal exposure during pregnancy [Unknown]
  - Hypoaesthesia [Not Recovered/Not Resolved]
  - Placental disorder [Not Recovered/Not Resolved]

NARRATIVE: CASE EVENT DATE: 20191028
